FAERS Safety Report 16644425 (Version 1)
Quarter: 2019Q3

REPORT INFORMATION
  Report Type: Report from Study
  Country: US (occurrence: US)
  Receive Date: 20190729
  Receipt Date: 20190729
  Transmission Date: 20191004
  Serious: Yes (Hospitalization)
  Sender: FDA-Public Use
  Company Number: US-GILEAD-2019-0419719

PATIENT
  Age: 64 Year
  Sex: Male
  Weight: 65.3 kg

DRUGS (2)
  1. AXICABTAGENE CILOLEUCEL [Suspect]
     Active Substance: AXICABTAGENE CILOLEUCEL
     Indication: DIFFUSE LARGE B-CELL LYMPHOMA
     Dosage: 68 ML, ONCE
     Route: 042
     Dates: start: 20190709, end: 20190709
  2. UTOMILUMAB [Suspect]
     Active Substance: UTOMILUMAB
     Indication: DIFFUSE LARGE B-CELL LYMPHOMA
     Dosage: 30 MG, ONCE
     Route: 042
     Dates: start: 20190710, end: 20190710

REACTIONS (2)
  - Confusional state [Recovered/Resolved]
  - Aphasia [Recovered/Resolved]

NARRATIVE: CASE EVENT DATE: 20190721
